FAERS Safety Report 4338018-X (Version None)
Quarter: 2004Q2

REPORT INFORMATION
  Report Type: 
  Country: None (occurrence: None)
  Receive Date: 20040407
  Receipt Date: 20040324
  Transmission Date: 20050107
  Serious: Yes (Hospitalization)
  Sender: FDA-Public Use
  Company Number: EWC040338268

PATIENT
  Age: 39 Year
  Sex: Male

DRUGS (5)
  1. CIALIS [Suspect]
     Indication: ERECTILE DYSFUNCTION
     Dates: start: 20031118, end: 20031118
  2. ALVEDON (PARACETAMOL) [Concomitant]
  3. STESOLID (DIAZEPAM) [Concomitant]
  4. DOLOXENE (DEXTROPROPOXYPHENE HYDROCHLORIDE) [Concomitant]
  5. LAMICTAL [Concomitant]

REACTIONS (2)
  - CEREBRAL INFARCTION [None]
  - FACIAL PARESIS [None]
